FAERS Safety Report 10246683 (Version 1)
Quarter: 2014Q2

REPORT INFORMATION
  Report Type: Spontaneous
  Country: FR (occurrence: FR)
  Receive Date: 20140619
  Receipt Date: 20140619
  Transmission Date: 20141212
  Serious: Yes (Hospitalization)
  Sender: FDA-Public Use
  Company Number: FR-ROCHE-1420103

PATIENT
  Age: 68 Year
  Sex: Female

DRUGS (10)
  1. MABTHERA [Suspect]
     Indication: POLYARTERITIS NODOSA
     Dosage: D1 AND D15
     Route: 042
     Dates: start: 201310
  2. NOVATREX [Suspect]
     Indication: POLYARTERITIS NODOSA
     Dosage: 2 DF IN MORNIG AND 2 DF IN EVENING PER WEEK
     Route: 048
  3. PREDNISONE [Suspect]
     Indication: POLYARTERITIS NODOSA
     Route: 048
  4. PREDNISONE [Suspect]
     Dosage: IN THE MORNING
     Route: 048
  5. FORSTEO [Concomitant]
  6. FOLIC ACID [Concomitant]
     Dosage: 5 MG PER WEEK
     Route: 065
  7. RABEPRAZOLE [Concomitant]
     Route: 065
  8. INSULIN [Concomitant]
  9. METHOTREXATE [Concomitant]
     Route: 065
  10. METHOTREXATE [Concomitant]
     Route: 065

REACTIONS (4)
  - Secondary immunodeficiency [Not Recovered/Not Resolved]
  - Condition aggravated [Not Recovered/Not Resolved]
  - Enterobacter sepsis [Recovered/Resolved]
  - Bronchitis [Recovered/Resolved]
